FAERS Safety Report 4578599-4 (Version None)
Quarter: 2005Q1

REPORT INFORMATION
  Report Type: 
  Country: None (occurrence: None)
  Receive Date: 20050207
  Receipt Date: 20050207
  Transmission Date: 20050727
  Serious: Yes (Other)
  Sender: FDA-Public Use
  Company Number: None

PATIENT
  Age: 35 Year
  Sex: Female
  Weight: 117.9352 kg

DRUGS (1)
  1. LEVAQUIN [Suspect]
     Indication: PNEUMONIA
     Dosage: 1 A DAY ORAL
     Route: 048
     Dates: start: 20050127, end: 20050202

REACTIONS (4)
  - ABASIA [None]
  - BACK PAIN [None]
  - BURNING SENSATION [None]
  - PAIN IN EXTREMITY [None]
